FAERS Safety Report 6731418-X (Version None)
Quarter: 2010Q2

REPORT INFORMATION
  Report Type: 
  Country: None (occurrence: None)
  Receive Date: 20100518
  Receipt Date: 20100518
  Transmission Date: 20101027
  Serious: Yes (Hospitalization)
  Sender: FDA-Public Use
  Company Number: None

PATIENT
  Sex: Female
  Weight: 68 kg

DRUGS (2)
  1. CARBOPLATIN [Suspect]
     Dosage: 627 MG
     Dates: end: 20100428
  2. TAXOL [Suspect]
     Dosage: 627 MG
     Dates: end: 20100513

REACTIONS (4)
  - NEUTROPHIL COUNT DECREASED [None]
  - PYREXIA [None]
  - STREPTOCOCCUS TEST POSITIVE [None]
  - WHITE BLOOD CELL COUNT DECREASED [None]
